FAERS Safety Report 11513746 (Version 1)
Quarter: 2015Q3

REPORT INFORMATION
  Report Type: Spontaneous
  Country: US (occurrence: US)
  Receive Date: 20150916
  Receipt Date: 20150916
  Transmission Date: 20151125
  Serious: No
  Sender: FDA-Public Use
  Company Number: US-PFIZER INC-2015293515

PATIENT
  Age: 76 Year
  Sex: Female
  Weight: 73.16 kg

DRUGS (1)
  1. IBRANCE [Suspect]
     Active Substance: PALBOCICLIB
     Indication: BREAST CANCER
     Dosage: 125 MG, (1-21 Q 28 DAYS)
     Route: 048
     Dates: start: 20150814

REACTIONS (3)
  - Nausea [Recovering/Resolving]
  - Musculoskeletal stiffness [Unknown]
  - Malaise [Unknown]
